FAERS Safety Report 23279426 (Version 1)
Quarter: 2023Q4

REPORT INFORMATION
  Report Type: Spontaneous
  Country: HR (occurrence: HR)
  Receive Date: 20231209
  Receipt Date: 20231209
  Transmission Date: 20240109
  Serious: Yes (Death)
  Sender: FDA-Public Use
  Company Number: HR-LA JOLLA PHARMACEUTICAL COMPANY-0000475

PATIENT

DRUGS (1)
  1. GIAPREZA [Suspect]
     Active Substance: ANGIOTENSIN II
     Indication: Distributive shock
     Dosage: UNK
     Route: 065

REACTIONS (1)
  - Disease complication [Fatal]
